FAERS Safety Report 4429051-8 (Version None)
Quarter: 2004Q3

REPORT INFORMATION
  Report Type: 
  Country: None (occurrence: None)
  Receive Date: 20040818
  Receipt Date: 20040722
  Transmission Date: 20050211
  Serious: Yes (Other)
  Sender: FDA-Public Use
  Company Number: GB-MERCK-0407GBR00226

PATIENT
  Age: 72 Year
  Sex: Male

DRUGS (6)
  1. AMIODARONE [Suspect]
     Route: 048
  2. ASPIRIN [Concomitant]
     Route: 065
  3. DOXAZOSIN MESYLATE [Suspect]
     Route: 048
     Dates: start: 20050430
  4. FELODIPINE [Suspect]
     Route: 048
     Dates: start: 20030513
  5. LAMOTRIGINE [Suspect]
     Indication: EPILEPSY
     Route: 048
     Dates: start: 20040331, end: 20040623
  6. ZOCOR [Suspect]
     Route: 048
     Dates: start: 20030401

REACTIONS (1)
  - RENAL FAILURE ACUTE [None]
